FAERS Safety Report 17488868 (Version 3)
Quarter: 2020Q2

REPORT INFORMATION
  Report Type: Spontaneous
  Country: US (occurrence: US)
  Receive Date: 20200303
  Receipt Date: 20200508
  Transmission Date: 20200713
  Serious: Yes (Death, Hospitalization, Other)
  Sender: FDA-Public Use
  Company Number: US-SA-2020SA054103

PATIENT
  Age: 62 Year
  Sex: Female
  Weight: 70.3 kg

DRUGS (4)
  1. DUPIXENT [Suspect]
     Active Substance: DUPILUMAB
     Indication: ASTHMA
     Dosage: 300 MG, QOW
     Route: 058
     Dates: start: 20191029
  2. LORBRENA [Concomitant]
     Active Substance: LORLATINIB
  3. NUCALA [Concomitant]
     Active Substance: MEPOLIZUMAB
  4. ALUNBRIG [Concomitant]
     Active Substance: BRIGATINIB

REACTIONS (2)
  - Malignant neoplasm progression [Unknown]
  - Death [Fatal]

NARRATIVE: CASE EVENT DATE: 20200429
